FAERS Safety Report 16152065 (Version 1)
Quarter: 2019Q2

REPORT INFORMATION
  Report Type: Spontaneous
  Country: US (occurrence: US)
  Receive Date: 20190403
  Receipt Date: 20190403
  Transmission Date: 20190711
  Serious: Yes (Death)
  Sender: FDA-Public Use
  Company Number: US-ROCHE-2295880

PATIENT
  Sex: Female

DRUGS (2)
  1. AVASTIN [Suspect]
     Active Substance: BEVACIZUMAB
     Indication: COLON CANCER
     Dosage: 8 MONTHS, DAY 1,15,29
     Route: 042
  2. CYRAMZA [Concomitant]
     Active Substance: RAMUCIRUMAB

REACTIONS (1)
  - Death [Fatal]
